FAERS Safety Report 24761361 (Version 1)
Quarter: 2024Q4

REPORT INFORMATION
  Report Type: Spontaneous
  Country: CN (occurrence: CN)
  Receive Date: 20241220
  Receipt Date: 20241220
  Transmission Date: 20250115
  Serious: Yes (Death, Life-Threatening, Other)
  Sender: BRACCO
  Company Number: CN-BRACCO-2023CN03237

PATIENT
  Age: 59 Year
  Sex: Male

DRUGS (3)
  1. MULTIHANCE [Suspect]
     Active Substance: GADOBENATE DIMEGLUMINE
     Indication: Magnetic resonance imaging
     Dosage: 12 ML, SINGLE
     Route: 040
     Dates: start: 20230628, end: 20230628
  2. IOVERSOL [Concomitant]
     Active Substance: IOVERSOL
     Dosage: 1 ML, SINGLE
     Route: 061
     Dates: start: 20230628
  3. IOVERSOL [Concomitant]
     Active Substance: IOVERSOL
     Dosage: 100 ML, SINGLE
     Route: 042
     Dates: start: 20230628

REACTIONS (6)
  - Respiratory failure [Fatal]
  - Shock [Not Recovered/Not Resolved]
  - Loss of consciousness [Not Recovered/Not Resolved]
  - Vomiting [Not Recovered/Not Resolved]
  - Nausea [Not Recovered/Not Resolved]
  - Cough [Not Recovered/Not Resolved]

NARRATIVE: CASE EVENT DATE: 20230628
